FAERS Safety Report 24745906 (Version 2)
Quarter: 2025Q1

REPORT INFORMATION
  Report Type: Report from Study
  Country: KR (occurrence: KR)
  Receive Date: 20241218
  Receipt Date: 20250307
  Transmission Date: 20250409
  Serious: Yes (Hospitalization)
  Sender: ELI LILLY AND COMPANY
  Company Number: KR-ELI_LILLY_AND_COMPANY-KR202412006584

PATIENT
  Age: 46 Year
  Sex: Female
  Weight: 48.3 kg

DRUGS (11)
  1. ABEMACICLIB [Suspect]
     Active Substance: ABEMACICLIB
     Indication: Breast cancer
     Dosage: 150 MG
     Route: 048
     Dates: start: 20240813, end: 20240910
  2. ABEMACICLIB [Suspect]
     Active Substance: ABEMACICLIB
     Dosage: 150 MG, BID
     Route: 065
     Dates: start: 20240917, end: 20240924
  3. FEMARA [Concomitant]
     Active Substance: LETROZOLE
     Indication: Breast cancer
     Route: 048
     Dates: start: 20240814
  4. MEDILAC DS [Concomitant]
     Indication: Diarrhoea
     Dates: start: 20240909, end: 20241010
  5. LOPERAMIDE HYDROCHLORIDE [Concomitant]
     Active Substance: LOPERAMIDE HYDROCHLORIDE
     Indication: Diarrhoea
     Dates: start: 20240909, end: 20240928
  6. STAVIC [Concomitant]
     Indication: Diarrhoea
     Dates: start: 20240909, end: 20240928
  7. SYNTHROID [Concomitant]
     Active Substance: LEVOTHYROXINE SODIUM
     Indication: Hypothyroidism
     Dates: start: 2003
  8. DICAMAX [Concomitant]
     Indication: Osteoporosis
     Dates: start: 20241204
  9. POLYBUTINE [TRIMEBUTINE] [Concomitant]
     Indication: Prophylaxis
     Dates: start: 20240928, end: 20240929
  10. DEXAMETHASONE SODIUM PHOSPHATE [Concomitant]
     Active Substance: DEXAMETHASONE SODIUM PHOSPHATE
     Indication: Prophylaxis
     Dates: start: 20240929, end: 20240929
  11. GOSERELIN ACETATE [Concomitant]
     Active Substance: GOSERELIN ACETATE
     Indication: Breast cancer
     Dosage: 3.6 MG, MONTHLY (1/M)
     Route: 065
     Dates: start: 20240813

REACTIONS (2)
  - Sepsis [Recovered/Resolved]
  - Stress cardiomyopathy [Recovered/Resolved with Sequelae]

NARRATIVE: CASE EVENT DATE: 20240928
